FAERS Safety Report 6943959-0 (Version None)
Quarter: 2010Q3

REPORT INFORMATION
  Report Type: 
  Country: None (occurrence: None)
  Receive Date: 20100826
  Receipt Date: 20100730
  Transmission Date: 20110219
  Serious: Yes (Hospitalization)
  Sender: FDA-Public Use
  Company Number: JP-GENENTECH-304865

PATIENT
  Sex: Female

DRUGS (18)
  1. RITUXAN [Suspect]
     Indication: DIFFUSE LARGE B-CELL LYMPHOMA
     Dosage: 530 MG, UNK
     Route: 042
     Dates: start: 20100510
  2. RITUXAN [Suspect]
     Dosage: 525 MG, UNK
     Route: 042
     Dates: start: 20100602
  3. BENDAMUSTINE [Suspect]
     Indication: DIFFUSE LARGE B-CELL LYMPHOMA
     Dosage: 170 MG, UNK
     Route: 042
     Dates: start: 20100511
  4. BENDAMUSTINE [Suspect]
     Dosage: 125 MG, UNK
     Route: 042
     Dates: start: 20100512
  5. BENDAMUSTINE [Suspect]
     Dosage: UNK
     Route: 042
     Dates: start: 20100603
  6. BENDAMUSTINE [Suspect]
     Dosage: UNK
     Route: 042
     Dates: start: 20100604
  7. LANSOPRAZOLE [Concomitant]
     Indication: GASTRITIS
     Dosage: 15 MG, QD
     Route: 048
  8. TEPRENONE [Concomitant]
     Indication: GASTRITIS
     Dosage: 100 MG, QD
     Route: 048
  9. IRSOGLADINE MALEATE [Concomitant]
     Indication: GASTRITIS
     Dosage: 4 MG, BID
     Route: 048
  10. DOMPERIDONE [Concomitant]
     Indication: GASTRITIS
     Dosage: 20 MG, QD
     Route: 048
  11. LEVOTHYROXINE [Concomitant]
     Indication: THYROID DISORDER
     Dosage: 100 A?G/HR, QD
     Route: 048
  12. ATORVASTATIN CALCIUM [Concomitant]
     Indication: HYPERLIPIDAEMIA
     Dosage: 10 MG, QD
     Route: 048
  13. ETIZOLAM [Concomitant]
     Indication: INSOMNIA
     Dosage: .025 MG, QD
     Route: 048
  14. AMBROXOL HYDROCHLORIDE [Concomitant]
     Indication: BRONCHITIS CHRONIC
     Dosage: 45 MG, TID
     Route: 048
  15. FLUCONAZOLE [Concomitant]
     Indication: INFECTION PROPHYLAXIS
     Dosage: 200 MG, BID
     Route: 048
     Dates: start: 20100510
  16. GLYCYRON #2 [Concomitant]
     Indication: HEPATIC FUNCTION ABNORMAL
     Dosage: UNK
     Route: 048
     Dates: start: 20100513
  17. MAGNESIUM OXIDE [Concomitant]
     Indication: CONSTIPATION
     Dosage: UNK
     Route: 048
  18. SENNOSIDE [Concomitant]
     Indication: CONSTIPATION
     Dosage: 24 MG, PRN
     Route: 048
     Dates: start: 20100515

REACTIONS (1)
  - GASTRIC CANCER [None]
